FAERS Safety Report 7991438-4 (Version None)
Quarter: 2011Q4

REPORT INFORMATION
  Report Type: 
  Country: None (occurrence: None)
  Receive Date: 20111219
  Receipt Date: 20111210
  Transmission Date: 20120403
  Serious: Yes (Hospitalization)
  Sender: FDA-Public Use
  Company Number: US-US-EMD SERONO, INC.-7100913

PATIENT
  Sex: Female

DRUGS (1)
  1. REBIF [Suspect]
     Indication: PRODUCT USED FOR UNKNOWN INDICATION
     Route: 058
     Dates: start: 20111005

REACTIONS (11)
  - VISUAL IMPAIRMENT [None]
  - FATIGUE [None]
  - SYNCOPE [None]
  - MIGRAINE [None]
  - CHEST PAIN [None]
  - INJECTION SITE HAEMATOMA [None]
  - GRIP STRENGTH DECREASED [None]
  - INFLUENZA LIKE ILLNESS [None]
  - INJECTION SITE PAIN [None]
  - HEADACHE [None]
  - BALANCE DISORDER [None]
